FAERS Safety Report 17122565 (Version 11)
Quarter: 2024Q2

REPORT INFORMATION
  Report Type: Spontaneous
  Country: PK (occurrence: PK)
  Receive Date: 20191206
  Receipt Date: 20240506
  Transmission Date: 20240716
  Serious: Yes (Other)
  Sender: FDA-Public Use
  Company Number: PK-PFIZER INC-2019518454

PATIENT
  Age: 31 Year
  Sex: Male
  Weight: 57 kg

DRUGS (6)
  1. ENBREL [Suspect]
     Active Substance: BENZYL ALCOHOL\ETANERCEPT
     Indication: Ankylosing spondylitis
     Dosage: UNK
     Route: 065
     Dates: start: 2012, end: 2013
  2. ENBREL [Suspect]
     Active Substance: BENZYL ALCOHOL\ETANERCEPT
     Dosage: 50 MG, WEEKLY
     Route: 058
     Dates: start: 20191128
  3. CELBEXX [Concomitant]
     Dosage: 200 MG, 1X/DAY AFTER MEAL
  4. Sunny d [Concomitant]
     Dosage: 200000 IU, MONTHLY
  5. CAC [Concomitant]
     Dosage: 1000 IU, DAILY
  6. SURBEX Z [Concomitant]
     Dosage: 1 DF, 1X/DAY

REACTIONS (12)
  - Iron deficiency anaemia [Unknown]
  - Weight increased [Unknown]
  - Pain in extremity [Recovering/Resolving]
  - Neck pain [Not Recovered/Not Resolved]
  - Back pain [Not Recovered/Not Resolved]
  - Pain [Unknown]
  - Musculoskeletal stiffness [Not Recovered/Not Resolved]
  - Red blood cell sedimentation rate increased [Unknown]
  - C-reactive protein increased [Unknown]
  - Joint range of motion decreased [Unknown]
  - Heart rate increased [Unknown]
  - Blood pressure increased [Unknown]

NARRATIVE: CASE EVENT DATE: 20210603
